FAERS Safety Report 20669228 (Version 2)
Quarter: 2022Q2

REPORT INFORMATION
  Report Type: Report from Study
  Country: FR (occurrence: FR)
  Receive Date: 20220404
  Receipt Date: 20220412
  Transmission Date: 20220721
  Serious: Yes (Other)
  Sender: FDA-Public Use
  Company Number: FR-ASTELLAS-2021US048169

PATIENT
  Age: 70 Year
  Sex: Male
  Weight: 102 kg

DRUGS (2)
  1. ENFORTUMAB VEDOTIN [Suspect]
     Active Substance: ENFORTUMAB VEDOTIN
     Indication: Transitional cell carcinoma
     Dosage: 1 MG/KG, CYCLIC (ON J1 AND J8)
     Route: 042
     Dates: start: 20210928
  2. ENFORTUMAB VEDOTIN [Suspect]
     Active Substance: ENFORTUMAB VEDOTIN
     Dosage: UNK UNK, UNKNOWN FREQ.
     Route: 042
     Dates: start: 20211123

REACTIONS (2)
  - Sciatic nerve palsy [Not Recovered/Not Resolved]
  - Rash [Recovering/Resolving]

NARRATIVE: CASE EVENT DATE: 20211110
